FAERS Safety Report 5046600-X (Version None)
Quarter: 2006Q2

REPORT INFORMATION
  Report Type: 
  Country: None (occurrence: None)
  Receive Date: 20060630
  Receipt Date: 20060621
  Transmission Date: 20061013
  Serious: Yes (Hospitalization)
  Sender: FDA-Public Use
  Company Number: 2006-06-1475

PATIENT
  Age: 71 Year
  Sex: Male
  Weight: 79 kg

DRUGS (8)
  1. TEMODAL [Suspect]
     Indication: GLIOBLASTOMA
     Dosage: 205 MG QD ORAL
     Route: 048
     Dates: start: 20060613, end: 20060619
  2. CONCOR [Concomitant]
  3. IMODIUM [Concomitant]
  4. OMNIFLORA TABLETS [Concomitant]
  5. ALBUMIN [Concomitant]
  6. CLEXANE [Concomitant]
  7. PANTOPRAZOLE SODIUM [Concomitant]
  8. DEXAMETHASONE TAB [Concomitant]

REACTIONS (3)
  - HAEMOGLOBIN DECREASED [None]
  - PLATELET COUNT DECREASED [None]
  - PNEUMONIA [None]
